FAERS Safety Report 7603337-8 (Version None)
Quarter: 2011Q3

REPORT INFORMATION
  Report Type: 
  Country: None (occurrence: None)
  Receive Date: 20110712
  Receipt Date: 20110630
  Transmission Date: 20111222
  Serious: Yes (Hospitalization)
  Sender: FDA-Public Use
  Company Number: PHHY2011JP03205

PATIENT
  Sex: Male

DRUGS (6)
  1. INTERFERON ALFA [Concomitant]
     Indication: METASTATIC RENAL CELL CARCINOMA
     Dosage: 3000000 IU
     Dates: start: 20040628, end: 20041025
  2. URIEF [Concomitant]
     Dosage: 4 MG, UNK
     Route: 048
     Dates: start: 20071206, end: 20090109
  3. SORAFENIB TOSILATE [Concomitant]
     Indication: METASTATIC RENAL CELL CARCINOMA
     Dosage: 800 MG, UNK
     Route: 048
     Dates: start: 20100316, end: 20101118
  4. FLIVAS [Concomitant]
     Dosage: 80 MG, UNK
     Route: 048
     Dates: start: 20090110
  5. AFINITOR [Suspect]
     Indication: METASTATIC RENAL CELL CARCINOMA
     Dosage: 10 MG, QD
     Route: 048
     Dates: start: 20101213, end: 20101221
  6. TECELEUKIN [Concomitant]
     Indication: METASTATIC RENAL CELL CARCINOMA
     Dosage: 700000 IU, UNK
     Dates: start: 20090623, end: 20100216

REACTIONS (2)
  - INTESTINAL OBSTRUCTION [None]
  - STOMATITIS [None]
